FAERS Safety Report 13733944 (Version 6)
Quarter: 2017Q4

REPORT INFORMATION
  Report Type: Spontaneous
  Country: JP (occurrence: JP)
  Receive Date: 20170707
  Receipt Date: 20171102
  Transmission Date: 20180320
  Serious: Yes (Hospitalization, Other)
  Sender: FDA-Public Use
  Company Number: JP-009507513-1706JPN001801J

PATIENT
  Age: 76 Year
  Sex: Female
  Weight: 34 kg

DRUGS (2)
  1. KEYTRUDA [Suspect]
     Active Substance: PEMBROLIZUMAB
     Indication: LUNG ADENOCARCINOMA STAGE IV
     Dosage: 200 MG, Q3W
     Route: 041
     Dates: start: 20170328, end: 20170509
  2. KEYTRUDA [Suspect]
     Active Substance: PEMBROLIZUMAB
     Dosage: 200 MG, Q3W
     Route: 041
     Dates: start: 20170712

REACTIONS (5)
  - Hepatic enzyme increased [Recovered/Resolved]
  - Jaundice cholestatic [Recovered/Resolved]
  - Mass [Recovered/Resolved]
  - Cholecystitis [Recovered/Resolved]
  - Duodenal papillitis [Recovering/Resolving]

NARRATIVE: CASE EVENT DATE: 2017
